FAERS Safety Report 5751198-4 (Version None)
Quarter: 2008Q2

REPORT INFORMATION
  Report Type: 
  Country: None (occurrence: None)
  Receive Date: 20080528
  Receipt Date: 20080502
  Transmission Date: 20081010
  Serious: Yes (Hospitalization)
  Sender: FDA-Public Use
  Company Number: AT-BOEHRINGER INGELHEIM GMBH, GERMANY-2008-BE-00036BE

PATIENT
  Sex: Female

DRUGS (1)
  1. PRAMIPEXOLE DIHYDROCHLORIDE [Suspect]
     Indication: RESTLESS LEGS SYNDROME
     Dosage: 0,088 MG 0/0/0/1;   0,18 MG 0/0/0/1

REACTIONS (3)
  - CONFUSIONAL STATE [None]
  - DEPRESSION [None]
  - SUICIDAL IDEATION [None]
